FAERS Safety Report 5683214-2 (Version None)
Quarter: 2008Q1

REPORT INFORMATION
  Report Type: 
  Country: None (occurrence: None)
  Receive Date: 20080327
  Receipt Date: 20080324
  Transmission Date: 20080703
  Serious: Yes (Hospitalization)
  Sender: FDA-Public Use
  Company Number: US-ASTRAZENECA-2008UW05852

PATIENT
  Sex: Female

DRUGS (4)
  1. SEROQUEL [Suspect]
     Route: 048
  2. SEROQUEL [Suspect]
     Route: 048
     Dates: start: 20070101
  3. TRAZODONE HCL [Concomitant]
     Dates: start: 20080301
  4. VALIUM [Concomitant]

REACTIONS (4)
  - DYSPHAGIA [None]
  - EATING DISORDER [None]
  - SPEECH DISORDER [None]
  - SWOLLEN TONGUE [None]
